FAERS Safety Report 4714829-3 (Version None)
Quarter: 2005Q3

REPORT INFORMATION
  Report Type: 
  Country: None (occurrence: None)
  Receive Date: 20050715
  Receipt Date: 20050707
  Transmission Date: 20060218
  Serious: Yes (Life-Threatening, Hospitalization)
  Sender: FDA-Public Use
  Company Number: IT-ABBOTT-05P-083-0305048-00

PATIENT
  Age: 46 Year
  Sex: Female
  Weight: 90 kg

DRUGS (1)
  1. NIMBEX [Suspect]
     Indication: ANALGESIC EFFECT
     Dosage: NOT REPORTED
     Route: 040

REACTIONS (3)
  - CARDIAC ARREST [None]
  - GLASGOW COMA SCALE ABNORMAL [None]
  - WRONG DRUG ADMINISTERED [None]
